FAERS Safety Report 19665656 (Version 1)
Quarter: 2021Q3

REPORT INFORMATION
  Report Type: Spontaneous
  Country: US (occurrence: US)
  Receive Date: 20210805
  Receipt Date: 20210805
  Transmission Date: 20211014
  Serious: No
  Sender: FDA-Public Use
  Company Number: None

PATIENT
  Sex: Male
  Weight: 68.85 kg

DRUGS (5)
  1. LOPERAMIDE [Concomitant]
     Active Substance: LOPERAMIDE
  2. CAPECITABINE. [Suspect]
     Active Substance: CAPECITABINE
     Indication: COLON CANCER
     Route: 048
  3. PROCHLORPERAZINE MALEATE. [Concomitant]
     Active Substance: PROCHLORPERAZINE MALEATE
  4. OXALIPLATIN. [Concomitant]
     Active Substance: OXALIPLATIN
  5. UREA 20 INTENSIVE HYDRATING [Concomitant]

REACTIONS (8)
  - Abnormal faeces [None]
  - Vomiting [None]
  - Weight decreased [None]
  - Fatigue [None]
  - Abdominal pain [None]
  - Mucosal inflammation [None]
  - Nausea [None]
  - Failure to thrive [None]
